FAERS Safety Report 24028860 (Version 2)
Quarter: 2024Q3

REPORT INFORMATION
  Report Type: Spontaneous
  Country: US (occurrence: US)
  Receive Date: 20240628
  Receipt Date: 20240704
  Transmission Date: 20241016
  Serious: Yes (Death, Other)
  Sender: EXELIXIS
  Company Number: US-EXELIXIS-CABO-24078780

PATIENT

DRUGS (1)
  1. CABOMETYX [Suspect]
     Active Substance: CABOZANTINIB S-MALATE
     Indication: Osteosarcoma
     Dosage: UNK

REACTIONS (4)
  - Death [Fatal]
  - Gastrostomy [Unknown]
  - Dysphagia [Unknown]
  - Off label use [Unknown]
